FAERS Safety Report 17408809 (Version 3)
Quarter: 2020Q3

REPORT INFORMATION
  Report Type: Spontaneous
  Country: PT (occurrence: PT)
  Receive Date: 20200212
  Receipt Date: 20200722
  Transmission Date: 20201102
  Serious: Yes (Death, Hospitalization, Other)
  Sender: FDA-Public Use
  Company Number: PT-009507513-1911PRT001858

PATIENT
  Age: 66 Year
  Sex: Male

DRUGS (4)
  1. PREDNISOLONE. [Suspect]
     Active Substance: PREDNISOLONE
     Indication: PNEUMONITIS
     Dosage: 125 MG
     Dates: start: 20191030, end: 20191105
  2. KEYTRUDA [Suspect]
     Active Substance: PEMBROLIZUMAB
     Indication: NON-SMALL CELL LUNG CANCER STAGE IV
     Dosage: ONE ADMINISTRATION/ ONE CYCLE
     Route: 065
     Dates: start: 20191022, end: 20191022
  3. INFLIXIMAB [Suspect]
     Active Substance: INFLIXIMAB
     Indication: PNEUMONITIS
     Dosage: 5 MILLIGRAM/KILOGRAM
     Route: 042
     Dates: start: 20191105
  4. KEYTRUDA [Suspect]
     Active Substance: PEMBROLIZUMAB
     Indication: LUNG ADENOCARCINOMA

REACTIONS (5)
  - Product use in unapproved indication [Fatal]
  - Therapy non-responder [Unknown]
  - Immune-mediated pneumonitis [Not Recovered/Not Resolved]
  - Off label use [Unknown]
  - General physical health deterioration [Fatal]

NARRATIVE: CASE EVENT DATE: 20191024
